FAERS Safety Report 7952163-9 (Version None)
Quarter: 2011Q4

REPORT INFORMATION
  Report Type: 
  Country: None (occurrence: None)
  Receive Date: 20111201
  Receipt Date: 20111118
  Transmission Date: 20120403
  Serious: Yes (Hospitalization)
  Sender: FDA-Public Use
  Company Number: PHHY2011AU099801

PATIENT
  Sex: Male

DRUGS (4)
  1. CLOZARIL [Suspect]
     Dosage: 300 MG
     Dates: start: 20050808
  2. VALPROIC ACID [Suspect]
  3. ANTIHYPERTENSIVES [Suspect]
  4. PERINDOPRIL ERBUMINE [Suspect]

REACTIONS (4)
  - CELLULITIS [None]
  - RENAL FAILURE [None]
  - FALL [None]
  - DRUG INTERACTION [None]
